FAERS Safety Report 25802624 (Version 1)
Quarter: 2025Q3

REPORT INFORMATION
  Report Type: Report from Study
  Country: JP (occurrence: JP)
  Receive Date: 20250915
  Receipt Date: 20250915
  Transmission Date: 20251020
  Serious: Yes (Other)
  Sender: EISAI
  Company Number: JP-Eisai-202507360_LEQ_P_1

PATIENT
  Sex: Female

DRUGS (2)
  1. LEQEMBI [Suspect]
     Active Substance: LECANEMAB-IRMB
     Indication: Dementia Alzheimer^s type
     Route: 041
  2. LEQEMBI [Suspect]
     Active Substance: LECANEMAB-IRMB
     Route: 041

REACTIONS (1)
  - Cerebral infarction [Unknown]
